FAERS Safety Report 5385075-8 (Version None)
Quarter: 2007Q3

REPORT INFORMATION
  Report Type: 
  Country: None (occurrence: None)
  Receive Date: 20070710
  Receipt Date: 20070710
  Transmission Date: 20080115
  Serious: No
  Sender: FDA-Public Use
  Company Number: None

PATIENT
  Age: 43 Year
  Sex: Male
  Weight: 68.9467 kg

DRUGS (2)
  1. SINGULAIR [Suspect]
     Indication: MULTIPLE ALLERGIES
     Dosage: 10 MG DAILY PO
     Route: 048
     Dates: start: 20070506, end: 20070606
  2. SINGULAIR [Suspect]
     Indication: NASAL CONGESTION
     Dosage: 10 MG DAILY PO
     Route: 048
     Dates: start: 20070506, end: 20070606

REACTIONS (2)
  - MUSCLE SPASMS [None]
  - MUSCLE TWITCHING [None]
